FAERS Safety Report 23246154 (Version 1)
Quarter: 2023Q4

REPORT INFORMATION
  Report Type: Spontaneous
  Country: US (occurrence: US)
  Receive Date: 20231130
  Receipt Date: 20231130
  Transmission Date: 20240109
  Serious: Yes (Death, Other)
  Sender: FDA-Public Use
  Company Number: US-FreseniusKabi-FK202319329

PATIENT
  Age: 38 Year
  Sex: Female

DRUGS (4)
  1. HEPARIN [Suspect]
     Active Substance: HEPARIN SODIUM
     Indication: Arteriosclerosis
  2. HEPARIN [Suspect]
     Active Substance: HEPARIN SODIUM
     Indication: Stenosis
  3. EPOPROSTENOL [Suspect]
     Active Substance: EPOPROSTENOL
     Indication: Raynaud^s phenomenon
  4. ASPIRIN [Suspect]
     Active Substance: ASPIRIN
     Indication: Arteriosclerosis

REACTIONS (3)
  - Cerebral haemorrhage [Fatal]
  - Brain oedema [Fatal]
  - Brain herniation [Fatal]
